FAERS Safety Report 19832000 (Version 2)
Quarter: 2021Q3

REPORT INFORMATION
  Report Type: Spontaneous
  Country: SI (occurrence: SI)
  Receive Date: 20210915
  Receipt Date: 20210923
  Transmission Date: 20211014
  Serious: Yes (Other)
  Sender: FDA-Public Use
  Company Number: SI-009507513-2109SVN002853

PATIENT
  Age: 68 Year
  Sex: Male

DRUGS (19)
  1. AMIKACIN. [Concomitant]
     Active Substance: AMIKACIN
     Indication: ACINETOBACTER INFECTION
     Dosage: UNK
     Dates: start: 202107, end: 20210703
  2. RECARBRIO [Suspect]
     Active Substance: CILASTATIN\IMIPENEM ANHYDROUS\RELEBACTAM ANHYDROUS
     Indication: SEPSIS
     Dosage: UNK
     Dates: start: 20210707, end: 20210720
  3. RECARBRIO [Suspect]
     Active Substance: CILASTATIN\IMIPENEM ANHYDROUS\RELEBACTAM ANHYDROUS
     Dosage: UNK
     Dates: start: 20210730
  4. MEROPENEM. [Concomitant]
     Active Substance: MEROPENEM
     Indication: HAEMODYNAMIC INSTABILITY
     Dosage: UNK
     Dates: start: 20210701, end: 20210702
  5. AMPICILLIN+SULBACTAM [Concomitant]
     Active Substance: AMPICILLIN SODIUM\SULBACTAM SODIUM
     Indication: ACINETOBACTER INFECTION
     Dosage: 12G/6 HOURS
     Route: 042
     Dates: start: 20210702
  6. NORADRENALINE (NORPINEPHRINE) [Concomitant]
     Active Substance: NOREPINEPHRINE
     Indication: PROPHYLAXIS
     Dosage: 0.1 ?G/KG/MIN
     Dates: start: 202107, end: 202107
  7. HYDROCORTISONE. [Concomitant]
     Active Substance: HYDROCORTISONE
     Indication: SEPTIC SHOCK
  8. NORADRENALINE (NORPINEPHRINE) [Concomitant]
     Active Substance: NOREPINEPHRINE
     Indication: SEPTIC SHOCK
     Dosage: 0.1 ?G/KG/MIN
     Dates: start: 20210730
  9. COLISTIN [Concomitant]
     Active Substance: COLISTIN
     Indication: PROPHYLAXIS
  10. HYDROCORTISONE. [Concomitant]
     Active Substance: HYDROCORTISONE
     Indication: SUPPORTIVE CARE
     Dosage: UNK
     Dates: start: 202107
  11. AMIKACIN. [Concomitant]
     Active Substance: AMIKACIN
     Indication: KLEBSIELLA INFECTION
  12. COLISTIN [Concomitant]
     Active Substance: COLISTIN
     Indication: ACINETOBACTER INFECTION
     Dosage: UNK
     Dates: start: 202107, end: 202107
  13. TIGECYCLINE. [Concomitant]
     Active Substance: TIGECYCLINE
     Indication: HAEMODYNAMIC INSTABILITY
  14. DOBUTAMINE [Concomitant]
     Active Substance: DOBUTAMINE HYDROCHLORIDE
     Indication: SEPTIC SHOCK
  15. COLISTIN [Concomitant]
     Active Substance: COLISTIN
     Indication: KLEBSIELLA INFECTION
     Dosage: UNK
     Dates: start: 20210724
  16. MEROPENEM. [Concomitant]
     Active Substance: MEROPENEM
     Indication: SEPTIC SHOCK
  17. AMPICILLIN+SULBACTAM [Concomitant]
     Active Substance: AMPICILLIN SODIUM\SULBACTAM SODIUM
     Indication: PNEUMONIA
  18. DOBUTAMINE [Concomitant]
     Active Substance: DOBUTAMINE HYDROCHLORIDE
     Indication: SUPPORTIVE CARE
     Dosage: UNK
     Dates: start: 202107
  19. TIGECYCLINE. [Concomitant]
     Active Substance: TIGECYCLINE
     Indication: SEPSIS
     Dosage: UNK
     Dates: start: 20210703

REACTIONS (16)
  - Parotitis [Unknown]
  - Inflammatory marker increased [Recovering/Resolving]
  - Skin graft [Unknown]
  - Inflammatory marker increased [Recovered/Resolved]
  - Septic shock [Unknown]
  - Transplant failure [Unknown]
  - Cholecystitis [Unknown]
  - Antimicrobial susceptibility test resistant [Unknown]
  - Surgery [Unknown]
  - Skin graft [Unknown]
  - Graft complication [Unknown]
  - Extubation [Unknown]
  - Inflammatory marker increased [Recovered/Resolved]
  - Oxygen therapy [Unknown]
  - Cellulitis [Unknown]
  - Aspiration [Unknown]

NARRATIVE: CASE EVENT DATE: 202107
